FAERS Safety Report 12188455 (Version 5)
Quarter: 2017Q2

REPORT INFORMATION
  Report Type: Report from Study
  Country: JP (occurrence: JP)
  Receive Date: 20160317
  Receipt Date: 20170629
  Transmission Date: 20170830
  Serious: Yes (Other)
  Sender: FDA-Public Use
  Company Number: JP-INCYTE CORPORATION-2016IN001503

PATIENT

DRUGS (10)
  1. JAKAVI [Suspect]
     Active Substance: RUXOLITINIB
     Dosage: 15 MG, BID
     Route: 048
     Dates: start: 20150522, end: 20150924
  2. JAKAVI [Suspect]
     Active Substance: RUXOLITINIB
     Dosage: 10 MG, BID
     Route: 048
     Dates: start: 20150925, end: 20160630
  3. IRRADIATED RED BLOOD CELLS-LEUKOCYTES REDUCED [Concomitant]
     Active Substance: HUMAN RED BLOOD CELL
     Indication: ANAEMIA
     Dosage: 2 IU, UNK
     Route: 065
     Dates: start: 20150105, end: 20150105
  4. IRRADIATED RED BLOOD CELLS-LEUKOCYTES REDUCED [Concomitant]
     Active Substance: HUMAN RED BLOOD CELL
     Dosage: 2 IU, UNK
     Route: 065
     Dates: start: 20150109, end: 20150109
  5. IRRADIATED RED BLOOD CELLS-LEUKOCYTES REDUCED [Concomitant]
     Active Substance: HUMAN RED BLOOD CELL
     Dosage: 2 IU, UNK
     Route: 065
     Dates: start: 20150227, end: 20150227
  6. JAKAVI [Suspect]
     Active Substance: RUXOLITINIB
     Dosage: 15 MG, BID
     Route: 048
     Dates: start: 20160701
  7. IRRADIATED RED BLOOD CELLS-LEUKOCYTES REDUCED [Concomitant]
     Active Substance: HUMAN RED BLOOD CELL
     Indication: PRIMARY MYELOFIBROSIS
     Dosage: 4 IU, UNK
     Route: 065
     Dates: start: 20150104, end: 20150104
  8. IRRADIATED RED BLOOD CELLS-LEUKOCYTES REDUCED [Concomitant]
     Active Substance: HUMAN RED BLOOD CELL
     Dosage: 2 IU, UNK
     Route: 065
     Dates: start: 20150213, end: 20150213
  9. JAKAVI [Suspect]
     Active Substance: RUXOLITINIB
     Indication: PRIMARY MYELOFIBROSIS
     Dosage: 10 MG, BID
     Route: 048
     Dates: start: 20150116, end: 20150521
  10. IRRADIATED RED BLOOD CELLS-LEUKOCYTES REDUCED [Concomitant]
     Active Substance: HUMAN RED BLOOD CELL
     Dosage: 2 IU, UNK
     Route: 065
     Dates: start: 20150313, end: 20150313

REACTIONS (5)
  - Blood alkaline phosphatase increased [Recovered/Resolved]
  - Blood lactate dehydrogenase increased [Unknown]
  - Platelet count decreased [Not Recovered/Not Resolved]
  - White blood cell count increased [Unknown]
  - Primary myelofibrosis [Unknown]

NARRATIVE: CASE EVENT DATE: 20150130
